FAERS Safety Report 5345531-5 (Version None)
Quarter: 2007Q2

REPORT INFORMATION
  Report Type: 
  Country: None (occurrence: None)
  Receive Date: 20070531
  Receipt Date: 20070517
  Transmission Date: 20071010
  Serious: Yes (Hospitalization)
  Sender: FDA-Public Use
  Company Number: 8022367

PATIENT
  Sex: Male

DRUGS (8)
  1. KEPPRA [Suspect]
     Indication: CONVULSION
     Dosage: 500 MG /D
  2. KEPPRA [Suspect]
     Indication: CONVULSION
     Dosage: 500 MG 3/D
  3. KEPPRA [Suspect]
     Indication: CONVULSION
     Dosage: 2500 MG
  4. BROMIDES [Suspect]
     Indication: CONVULSION
     Dosage: 400 MG 3/D
     Dates: start: 20031103
  5. BROMIDES [Suspect]
     Indication: CONVULSION
     Dosage: 960 MG
     Dates: start: 20070307
  6. DEPAKOTE ER [Concomitant]
  7. CLOBAZAM [Concomitant]
  8. IRON [Concomitant]

REACTIONS (13)
  - ANAEMIA [None]
  - BROMODERMA [None]
  - CELLULITIS [None]
  - CLONUS [None]
  - DISSEMINATED INTRAVASCULAR COAGULATION [None]
  - HAEMORRHAGE [None]
  - HYPERREFLEXIA [None]
  - MUSCLE CONTRACTURE [None]
  - PAIN [None]
  - PSEUDOMONAS INFECTION [None]
  - SKIN LESION [None]
  - ULCER [None]
  - WHITE BLOOD CELL COUNT DECREASED [None]
